FAERS Safety Report 15808440 (Version 2)
Quarter: 2019Q1

REPORT INFORMATION
  Report Type: Spontaneous
  Country: AU (occurrence: AU)
  Receive Date: 20190110
  Receipt Date: 20190208
  Transmission Date: 20190417
  Serious: Yes (Hospitalization)
  Sender: FDA-Public Use
  Company Number: AU-ALLERGAN-1901089US

PATIENT
  Age: 80 Year
  Sex: Female

DRUGS (2)
  1. PREDNEFRIN FORTE [Suspect]
     Active Substance: PHENYLEPHRINE HYDROCHLORIDE\PREDNISOLONE ACETATE
     Indication: PRODUCT USED FOR UNKNOWN INDICATION
     Dosage: UNKNOWN
     Route: 047
  2. REFRESH CELLUVISC [Suspect]
     Active Substance: CARBOXYMETHYLCELLULOSE SODIUM
     Indication: PRODUCT USED FOR UNKNOWN INDICATION
     Dosage: UNKNOWN
     Route: 047

REACTIONS (2)
  - Corneal disorder [Unknown]
  - Product use complaint [Unknown]
